FAERS Safety Report 5753219-1 (Version None)
Quarter: 2008Q2

REPORT INFORMATION
  Report Type: 
  Country: None (occurrence: None)
  Receive Date: 20080530
  Receipt Date: 20080530
  Transmission Date: 20081010
  Serious: Yes (Life-Threatening, Hospitalization)
  Sender: FDA-Public Use
  Company Number: None

PATIENT
  Age: 46 Year
  Sex: Male
  Weight: 127.0072 kg

DRUGS (6)
  1. HEPARIN [Suspect]
     Indication: HAEMODIALYSIS
     Dosage: 1.5 ML DIALYSIS HEMODIALYSIS
     Route: 010
     Dates: start: 20050213, end: 20050302
  2. FAMOTIDINE [Concomitant]
  3. LEVOFLOXACIN [Concomitant]
  4. VANCOMYCIN [Concomitant]
  5. IV SALINE WITH SODIUM BICARBONATE [Concomitant]
  6. HYDROMORPHINE [Concomitant]

REACTIONS (8)
  - ANTIBODY TEST POSITIVE [None]
  - CARDIOMEGALY [None]
  - CARDIOMYOPATHY [None]
  - COMPARTMENT SYNDROME [None]
  - EMBOLISM VENOUS [None]
  - FAT EMBOLISM [None]
  - HEPARIN-INDUCED THROMBOCYTOPENIA [None]
  - LEG AMPUTATION [None]
